FAERS Safety Report 12655929 (Version 1)
Quarter: 2016Q3

REPORT INFORMATION
  Report Type: Spontaneous
  Country: US (occurrence: US)
  Receive Date: 20160816
  Receipt Date: 20160816
  Transmission Date: 20161109
  Serious: No
  Sender: FDA-Public Use
  Company Number: US-PFIZER INC-2016387993

PATIENT
  Age: 29 Year
  Sex: Male
  Weight: 50.34 kg

DRUGS (1)
  1. ADVIL [Suspect]
     Active Substance: IBUPROFEN
     Indication: HEADACHE
     Dosage: 200 MG, 2X/DAY(ONCE EARLY MORNING AND ONCE IN THE EVENING)
     Route: 048
     Dates: start: 20160811, end: 20160811

REACTIONS (2)
  - Condition aggravated [Unknown]
  - Headache [Recovering/Resolving]

NARRATIVE: CASE EVENT DATE: 20160811
